FAERS Safety Report 4558121-9 (Version None)
Quarter: 2005Q1

REPORT INFORMATION
  Report Type: 
  Country: None (occurrence: None)
  Receive Date: 20050103
  Receipt Date: 20040923
  Transmission Date: 20050727
  Serious: Yes (Other)
  Sender: FDA-Public Use
  Company Number: 2004UW19836

PATIENT
  Age: 57 Year
  Sex: Female
  Weight: 75.7507 kg

DRUGS (4)
  1. CRESTOR [Suspect]
     Indication: BLOOD CHOLESTEROL INCREASED
     Dosage: 10 MG PO
     Route: 048
     Dates: start: 20040917
  2. LEVOXYL [Concomitant]
  3. ESTRACE [Concomitant]
  4. PRINIVIL [Concomitant]

REACTIONS (4)
  - FEELING HOT [None]
  - HALO VISION [None]
  - PARAESTHESIA [None]
  - PERIPHERAL COLDNESS [None]
